FAERS Safety Report 14968481 (Version 1)
Quarter: 2018Q2

REPORT INFORMATION
  Report Type: Spontaneous
  Country: US (occurrence: US)
  Receive Date: 20180511
  Receipt Date: 20180511
  Transmission Date: 20180711
  Serious: Yes (Life-Threatening, Hospitalization)
  Sender: FDA-Public Use
  Company Number: None

PATIENT
  Age: 53 Year
  Sex: Female
  Weight: 64.35 kg

DRUGS (17)
  1. FLUTICASON INHALER [Concomitant]
  2. CITALOPRAM [Concomitant]
     Active Substance: CITALOPRAM HYDROBROMIDE
  3. OXYMORPHONE ER [Suspect]
     Active Substance: OXYMORPHONE
     Indication: CANCER PAIN
     Dosage: ?          QUANTITY:1 TABLET(S);?
     Route: 048
  4. ALPRAOLAM [Concomitant]
  5. FLUTICASON NASAL SPRAY [Concomitant]
  6. HYDROMORPHONE [Concomitant]
     Active Substance: HYDROMORPHONE
  7. OXYCODONE [Concomitant]
     Active Substance: OXYCODONE
  8. ZOMETA IV [Concomitant]
  9. HERCEPTIN INFUSION [Concomitant]
  10. ALBUTEROL INHALE [Concomitant]
  11. MELOXICAM. [Concomitant]
     Active Substance: MELOXICAM
  12. OXYBUTININ [Concomitant]
     Active Substance: OXYBUTYNIN
  13. MELATONIN [Concomitant]
     Active Substance: MELATONIN
  14. LEVOFLOXACIN. [Suspect]
     Active Substance: LEVOFLOXACIN
     Indication: PNEUMONIA
     Dosage: ?          QUANTITY:1 TABLET(S);?
     Route: 048
     Dates: start: 20180501, end: 20180505
  15. IPRATROPIUM-ALBUTEROL NEBULIZER [Concomitant]
  16. PANTROPRAZOLE [Concomitant]
  17. GABAPENTIN. [Concomitant]
     Active Substance: GABAPENTIN

REACTIONS (1)
  - Acute respiratory failure [None]

NARRATIVE: CASE EVENT DATE: 20180509
